FAERS Safety Report 21192544 (Version 1)
Quarter: 2022Q3

REPORT INFORMATION
  Report Type: Spontaneous
  Country: CN (occurrence: CN)
  Receive Date: 20220809
  Receipt Date: 20220809
  Transmission Date: 20221026
  Serious: Yes (Hospitalization)
  Sender: FDA-Public Use
  Company Number: CN-BRISTOL-MYERS SQUIBB COMPANY-2022-084451

PATIENT
  Age: 33 Year
  Sex: Female
  Weight: 46 kg

DRUGS (3)
  1. OPDIVO [Suspect]
     Active Substance: NIVOLUMAB
     Indication: Gastric cancer
     Route: 041
     Dates: start: 20220418, end: 20220620
  2. XELODA [Suspect]
     Active Substance: CAPECITABINE
     Indication: Gastric cancer
     Route: 048
     Dates: start: 20220418, end: 20220703
  3. ELOXATIN [Concomitant]
     Active Substance: OXALIPLATIN
     Indication: Gastric cancer
     Route: 065
     Dates: start: 20220418, end: 20220620

REACTIONS (4)
  - Diarrhoea [Recovering/Resolving]
  - Abdominal distension [Unknown]
  - Condition aggravated [Unknown]
  - Off label use [Unknown]

NARRATIVE: CASE EVENT DATE: 20220510
